FAERS Safety Report 5691366-3 (Version None)
Quarter: 2008Q2

REPORT INFORMATION
  Report Type: 
  Country: None (occurrence: None)
  Receive Date: 20080402
  Receipt Date: 20080325
  Transmission Date: 20081010
  Serious: Yes (Other)
  Sender: FDA-Public Use
  Company Number: US-BAYER-200818040NA

PATIENT
  Age: 40 Year
  Sex: Female
  Weight: 59 kg

DRUGS (2)
  1. ULTRAVIST 300 [Suspect]
     Indication: COMPUTERISED TOMOGRAM
     Dosage: TOTAL DAILY DOSE: 130 ML  UNIT DOSE: 150 ML
     Route: 042
     Dates: start: 20080325, end: 20080325
  2. ORAL CONTRAST [Concomitant]
     Indication: COMPUTERISED TOMOGRAM
     Route: 048
     Dates: start: 20080301, end: 20080301

REACTIONS (3)
  - DYSPNOEA [None]
  - HYPOAESTHESIA FACIAL [None]
  - URTICARIA [None]
